FAERS Safety Report 17569307 (Version 2)
Quarter: 2020Q2

REPORT INFORMATION
  Report Type: Report from Study
  Country: US (occurrence: US)
  Receive Date: 20200322
  Receipt Date: 20200403
  Transmission Date: 20200713
  Serious: Yes (Other)
  Sender: FDA-Public Use
  Company Number: US-TEVA-2020-US-1208574

PATIENT
  Sex: Female

DRUGS (1)
  1. AMBRISENTAN TEVA [Suspect]
     Active Substance: AMBRISENTAN
     Dosage: 10 MILLIGRAM DAILY;
     Route: 065

REACTIONS (5)
  - Drug hypersensitivity [Unknown]
  - Pruritus [Unknown]
  - Pharyngeal swelling [Unknown]
  - Rash [Unknown]
  - Urticaria [Unknown]
